FAERS Safety Report 24124117 (Version 2)
Quarter: 2024Q3

REPORT INFORMATION
  Report Type: Spontaneous
  Country: IT (occurrence: IT)
  Receive Date: 20240723
  Receipt Date: 20240805
  Transmission Date: 20241017
  Serious: Yes (Other)
  Sender: BAUSCH AND LOMB
  Company Number: IT-LEO Pharma-372069

PATIENT
  Age: 62 Year
  Sex: Male

DRUGS (1)
  1. BRODALUMAB [Suspect]
     Active Substance: BRODALUMAB
     Indication: Psoriasis
     Route: 065

REACTIONS (1)
  - Hepatic neoplasm [Recovering/Resolving]

NARRATIVE: CASE EVENT DATE: 20240514
